FAERS Safety Report 9986524 (Version 1)
Quarter: 2014Q1

REPORT INFORMATION
  Report Type: Report from Study
  Country: US (occurrence: US)
  Receive Date: 20140307
  Receipt Date: 20140307
  Transmission Date: 20141002
  Serious: No
  Sender: FDA-Public Use
  Company Number: US-ABBVIE-13P-163-1082185-00

PATIENT
  Age: 60 Year
  Sex: Male

DRUGS (3)
  1. HUMIRA [Suspect]
     Indication: PSORIATIC ARTHROPATHY
     Route: 058
     Dates: start: 20130327
  2. COUMADIN [Concomitant]
     Indication: AORTIC VALVE REPLACEMENT
     Dosage: 7.5 MG, 3 DAYS A WEEK AND 5 MG 4 DAYS A WEEK
  3. DEPAKOTE [Concomitant]
     Indication: CONVULSION

REACTIONS (2)
  - Wrong technique in drug usage process [Recovered/Resolved]
  - Accidental exposure to product [Recovered/Resolved]
